FAERS Safety Report 20616203 (Version 1)
Quarter: 2022Q1

REPORT INFORMATION
  Report Type: Spontaneous
  Country: US (occurrence: None)
  Receive Date: 20220318
  Receipt Date: 20220318
  Transmission Date: 20220423
  Serious: Yes (Hospitalization)
  Sender: FDA-Public Use
  Company Number: None

PATIENT
  Age: 50 Year
  Sex: Male
  Weight: 58 kg

DRUGS (1)
  1. EVUSHELD [Suspect]
     Active Substance: CILGAVIMAB\TIXAGEVIMAB
     Dates: start: 20220313

REACTIONS (9)
  - Hypotension [None]
  - Asthenia [None]
  - Acute kidney injury [None]
  - Diarrhoea [None]
  - Nausea [None]
  - Dyspnoea [None]
  - Renal tubular necrosis [None]
  - Escherichia sepsis [None]
  - Vomiting [None]

NARRATIVE: CASE EVENT DATE: 20220316
